FAERS Safety Report 5158309-2 (Version None)
Quarter: 2006Q4

REPORT INFORMATION
  Report Type: 
  Country: None (occurrence: None)
  Receive Date: 20061128
  Receipt Date: 20061116
  Transmission Date: 20070319
  Serious: Yes (Hospitalization)
  Sender: FDA-Public Use
  Company Number: US-JNJFOC-20060402067

PATIENT
  Sex: Female
  Weight: 88.91 kg

DRUGS (6)
  1. DURAGESIC-100 [Suspect]
     Indication: PAIN
     Route: 062
  2. DURAGESIC-100 [Suspect]
     Indication: ARTHRITIS
     Route: 062
  3. INSULIN [Concomitant]
     Indication: DIABETES MELLITUS
  4. VALIUM [Concomitant]
  5. VICODIN [Concomitant]
  6. TRISOL [Concomitant]

REACTIONS (26)
  - ACCIDENTAL OVERDOSE [None]
  - ATRIAL FIBRILLATION [None]
  - ATRIAL TACHYCARDIA [None]
  - BACTERAEMIA [None]
  - BLOOD GLUCOSE INCREASED [None]
  - BLOOD POTASSIUM INCREASED [None]
  - BUNDLE BRANCH BLOCK RIGHT [None]
  - CONSTIPATION [None]
  - CONTUSION [None]
  - DEHYDRATION [None]
  - DEPRESSED LEVEL OF CONSCIOUSNESS [None]
  - DRUG TOXICITY [None]
  - ELECTROCARDIOGRAM ABNORMAL [None]
  - ELECTROCARDIOGRAM Q WAVE ABNORMAL [None]
  - ESCHERICHIA INFECTION [None]
  - HEPATIC CIRRHOSIS [None]
  - INAPPROPRIATE SCHEDULE OF DRUG ADMINISTRATION [None]
  - LETHARGY [None]
  - MALAISE [None]
  - MENTAL STATUS CHANGES [None]
  - MYOCARDIAL INFARCTION [None]
  - PYELONEPHRITIS [None]
  - RHABDOMYOLYSIS [None]
  - SUPRAVENTRICULAR EXTRASYSTOLES [None]
  - ULCER [None]
  - URINE ANALYSIS ABNORMAL [None]
